FAERS Safety Report 9607459 (Version 1)
Quarter: 2013Q4

REPORT INFORMATION
  Report Type: Spontaneous
  Country: US (occurrence: US)
  Receive Date: 20131009
  Receipt Date: 20131009
  Transmission Date: 20140711
  Serious: Yes (Hospitalization, Other)
  Sender: FDA-Public Use
  Company Number: US-SA-2013SA097077

PATIENT
  Age: 39 Year
  Sex: Female

DRUGS (1)
  1. LANTUS [Suspect]
     Indication: TYPE 2 DIABETES MELLITUS
     Dosage: 50 UNITS AM/50 UNITS PM.
     Route: 051

REACTIONS (4)
  - Road traffic accident [Unknown]
  - Bipolar disorder [Unknown]
  - Nervousness [Unknown]
  - Incorrect product storage [Unknown]
